FAERS Safety Report 5426036-X (Version None)
Quarter: 2007Q3

REPORT INFORMATION
  Report Type: 
  Country: None (occurrence: None)
  Receive Date: 20070824
  Receipt Date: 20070824
  Transmission Date: 20080115
  Serious: Yes (Other)
  Sender: FDA-Public Use
  Company Number: None

PATIENT
  Sex: Female
  Weight: 69.4003 kg

DRUGS (3)
  1. LORTAB [Suspect]
     Indication: INTERVERTEBRAL DISC DEGENERATION
     Dosage: 2 TABS QID PO
     Route: 048
  2. VALIUM [Suspect]
     Indication: ANXIETY
     Dosage: 1 TAB QID PO
     Route: 048
  3. VALIUM [Suspect]
     Indication: MUSCLE SPASMS
     Dosage: 1 TAB QID PO
     Route: 048

REACTIONS (8)
  - ANXIETY [None]
  - DIARRHOEA [None]
  - DRUG INEFFECTIVE [None]
  - HEADACHE [None]
  - MUSCLE SPASMS [None]
  - NAUSEA [None]
  - PAIN [None]
  - STOMACH DISCOMFORT [None]
